FAERS Safety Report 6228399-4 (Version None)
Quarter: 2009Q2

REPORT INFORMATION
  Report Type: 
  Country: None (occurrence: None)
  Receive Date: 20090610
  Receipt Date: 20090610
  Transmission Date: 20091009
  Serious: Yes (Hospitalization)
  Sender: FDA-Public Use
  Company Number: None

PATIENT
  Sex: Female
  Weight: 50 kg

DRUGS (5)
  1. CYCLOPHOSPHAMIDE [Suspect]
     Dosage: 1073 MG
  2. DOXORUBICIN HYDROCHLORIDE [Suspect]
     Dosage: 72 MG
  3. PREDNISONE [Suspect]
     Dosage: 57 MG
  4. RITUXIMAB (MOAB C2B8 ANTI CD20, CHIMERIC) [Suspect]
     Dosage: 536 MG
  5. VINCRISTINE SULFATE [Suspect]
     Dosage: 2 MG

REACTIONS (3)
  - CATHETER REMOVAL [None]
  - FEBRILE NEUTROPENIA [None]
  - KLEBSIELLA BACTERAEMIA [None]
